FAERS Safety Report 24052124 (Version 2)
Quarter: 2024Q4

REPORT INFORMATION
  Report Type: Spontaneous
  Country: EG (occurrence: EG)
  Receive Date: 20240704
  Receipt Date: 20241008
  Transmission Date: 20250114
  Serious: Yes (Hospitalization, Other)
  Sender: PFIZER
  Company Number: EG-PFIZER INC-PV202400086615

PATIENT
  Age: 62 Year
  Sex: Female
  Weight: 42 kg

DRUGS (4)
  1. CARBOPLATIN [Suspect]
     Active Substance: CARBOPLATIN
     Indication: Breast cancer
     Dosage: 120 MG, CYCLIC (D1 , 8,15 /EVERY 4 WEEKS)
     Route: 042
     Dates: start: 20240529
  2. CARBOPLATIN [Suspect]
     Active Substance: CARBOPLATIN
     Dosage: 134 MG, EVERY 3 WEEKS
     Route: 042
  3. GEMCITABINE HYDROCHLORIDE [Suspect]
     Active Substance: GEMCITABINE HYDROCHLORIDE
     Dosage: 1400 MG, CYCLIC (DAY 1, 8, 15 /EVERY 4 WEEKS)
     Route: 042
     Dates: start: 20240529
  4. GEMZAR [Suspect]
     Active Substance: GEMCITABINE HYDROCHLORIDE
     Indication: Breast cancer
     Dosage: 1400 MG, EVERY 3 WEEKS (DAY 1,8,15)
     Route: 042

REACTIONS (3)
  - Pancytopenia [Recovering/Resolving]
  - Pancytopenia [Unknown]
  - Off label use [Unknown]

NARRATIVE: CASE EVENT DATE: 20240605
